FAERS Safety Report 4876126-5 (Version None)
Quarter: 2006Q1

REPORT INFORMATION
  Report Type: 
  Country: None (occurrence: None)
  Receive Date: 20060110
  Receipt Date: 20050421
  Transmission Date: 20060701
  Serious: No
  Sender: FDA-Public Use
  Company Number: US-GLAXOSMITHKLINE-A0555193A

PATIENT
  Age: 5 Year
  Sex: Male

DRUGS (3)
  1. ACLOVATE [Suspect]
  2. EYE DROPS [Concomitant]
  3. ZYRTEC [Concomitant]

REACTIONS (1)
  - DRUG INEFFECTIVE [None]
